FAERS Safety Report 6654181-X (Version None)
Quarter: 2010Q1

REPORT INFORMATION
  Report Type: 
  Country: None (occurrence: None)
  Receive Date: 20100326
  Receipt Date: 20100317
  Transmission Date: 20100710
  Serious: Yes (Death, Hospitalization, Other)
  Sender: FDA-Public Use
  Company Number: CA-AMGEN-QUU388958

PATIENT
  Sex: Female
  Weight: 58 kg

DRUGS (1)
  1. ENBREL [Suspect]
     Indication: RHEUMATOID ARTHRITIS
     Route: 058
     Dates: start: 20041001, end: 20100128

REACTIONS (4)
  - FELTY'S SYNDROME [None]
  - INFECTION [None]
  - NEUTROPENIA [None]
  - PANCYTOPENIA [None]
